FAERS Safety Report 5209514-8 (Version None)
Quarter: 2007Q1

REPORT INFORMATION
  Report Type: 
  Country: None (occurrence: None)
  Receive Date: 20070116
  Receipt Date: 20070105
  Transmission Date: 20070707
  Serious: Yes (Other)
  Sender: FDA-Public Use
  Company Number: US-PFIZER INC-2007002513

PATIENT
  Sex: Male

DRUGS (2)
  1. ERAXIS [Suspect]
     Indication: FUNGAL INFECTION
  2. DRUG, UNSPECIFIED [Concomitant]

REACTIONS (3)
  - CEREBROVASCULAR ACCIDENT [None]
  - CONVULSION [None]
  - MUSCLE TWITCHING [None]
